FAERS Safety Report 10022255 (Version 2)
Quarter: 2014Q2

REPORT INFORMATION
  Report Type: Spontaneous
  Country: US (occurrence: US)
  Receive Date: 20140319
  Receipt Date: 20140415
  Transmission Date: 20141212
  Serious: Yes (Death, Other)
  Sender: FDA-Public Use
  Company Number: US-AMGEN-USASP2014018252

PATIENT
  Age: 85 Year
  Sex: Male
  Weight: 68.48 kg

DRUGS (3)
  1. ARANESP [Suspect]
     Indication: PRODUCT USED FOR UNKNOWN INDICATION
     Dosage: 500 MUG, Q3WK
     Route: 058
     Dates: start: 20131112
  2. CISPLATIN [Concomitant]
     Indication: LUNG NEOPLASM MALIGNANT
     Dosage: 12 MG, Q3WK
     Route: 042
     Dates: start: 20131022, end: 20140109
  3. ETOPOSIDE [Concomitant]
     Dosage: 179 MG, Q3WK
     Route: 042
     Dates: start: 20131022, end: 20140109

REACTIONS (4)
  - Renal failure [Unknown]
  - Hypomagnesaemia [Unknown]
  - Metastases to bone [Unknown]
  - Small cell lung cancer [Fatal]
